FAERS Safety Report 12310493 (Version 1)
Quarter: 2016Q2

REPORT INFORMATION
  Report Type: Report from Study
  Country: DE (occurrence: DE)
  Receive Date: 20160427
  Receipt Date: 20160427
  Transmission Date: 20160815
  Serious: Yes (Other)
  Sender: FDA-Public Use
  Company Number: DE-CELGENEUS-DEU-2016043699

PATIENT
  Sex: Female

DRUGS (2)
  1. ABRAXANE [Suspect]
     Active Substance: PACLITAXEL
     Indication: BREAST CANCER
     Route: 041
     Dates: start: 201301
  2. ABRAXANE [Suspect]
     Active Substance: PACLITAXEL
     Dosage: REDUCED
     Route: 041

REACTIONS (6)
  - Neuropathy peripheral [Unknown]
  - Neuralgia [Unknown]
  - White blood cell count decreased [Unknown]
  - Deafness [Unknown]
  - Insomnia [Unknown]
  - Platelet count decreased [Unknown]

NARRATIVE: CASE EVENT DATE: 201301
